FAERS Safety Report 6432550-0 (Version None)
Quarter: 2009Q4

REPORT INFORMATION
  Report Type: 
  Country: None (occurrence: None)
  Receive Date: 20091109
  Receipt Date: 20091026
  Transmission Date: 20100525
  Serious: Yes (Hospitalization)
  Sender: FDA-Public Use
  Company Number: US-MYLANLABS-2009S1018645

PATIENT
  Age: 52 Year
  Sex: Female

DRUGS (5)
  1. LORAZEPAM [Suspect]
     Indication: AGITATION
     Dosage: 2MG EVERY 4 HOURS
     Route: 042
  2. ZIPRASIDONE HCL [Concomitant]
     Indication: AGITATION
     Dosage: 20MG TWICE DAILY
     Route: 048
  3. HALOPERIDOL [Concomitant]
     Indication: AGITATION
     Dosage: 5MG EVERY 8 HOURS
     Route: 042
  4. TIOTIXENE [Concomitant]
     Dosage: 10MG QHS
     Route: 048
  5. LITHIUM CARBONATE [Concomitant]
     Dosage: 150MG QHS
     Route: 048

REACTIONS (1)
  - DELIRIUM [None]
